FAERS Safety Report 16594611 (Version 1)
Quarter: 2019Q3

REPORT INFORMATION
  Report Type: Spontaneous
  Country: FR (occurrence: FR)
  Receive Date: 20190718
  Receipt Date: 20190718
  Transmission Date: 20191004
  Serious: Yes (Hospitalization, Other)
  Sender: FDA-Public Use
  Company Number: FR-SA-2019SA188165

PATIENT
  Age: 52 Year
  Sex: Female
  Weight: 80 kg

DRUGS (12)
  1. CELECOXIB. [Suspect]
     Active Substance: CELECOXIB
     Indication: SUICIDE ATTEMPT
     Dosage: 1 G, TOTAL
     Route: 048
     Dates: start: 20180412, end: 20180412
  2. TRAMADOL HYDROCHLORIDE. [Suspect]
     Active Substance: TRAMADOL HYDROCHLORIDE
     Indication: SUICIDE ATTEMPT
     Dosage: 3.98 G, TOTAL
     Route: 048
     Dates: start: 20180412, end: 20180412
  3. FENOFIBRATE. [Suspect]
     Active Substance: FENOFIBRATE
     Indication: SUICIDE ATTEMPT
     Dosage: 10 G, TOTAL
     Route: 048
     Dates: start: 20180412, end: 20180412
  4. ZOPICLONE [Suspect]
     Active Substance: ZOPICLONE
     Indication: SUICIDE ATTEMPT
     Dosage: 105 MG, TOTAL
     Route: 048
     Dates: start: 20180412, end: 20180412
  5. PARACETAMOL [Suspect]
     Active Substance: ACETAMINOPHEN
     Indication: SUICIDE ATTEMPT
     Dosage: 34.45 G, TOTAL
     Route: 048
     Dates: start: 20180412, end: 20180412
  6. TRANXENE [Suspect]
     Active Substance: CLORAZEPATE DIPOTASSIUM
     Indication: SUICIDE ATTEMPT
     Dosage: 310 MG, TOTAL
     Route: 048
     Dates: start: 20180412, end: 20180412
  7. IRBESARTAN. [Suspect]
     Active Substance: IRBESARTAN
     Indication: SUICIDE ATTEMPT
     Dosage: 1.5 G, TOTAL
     Route: 048
     Dates: start: 20180412, end: 20180412
  8. METHOCARBAMOL/PARACETAMOL [Suspect]
     Active Substance: ACETAMINOPHEN\METHOCARBAMOL
     Indication: SUICIDE ATTEMPT
     Dosage: 10 G, TOTAL
     Route: 048
     Dates: start: 20180412, end: 20180412
  9. BROMAZEPAM [Suspect]
     Active Substance: BROMAZEPAM
     Indication: SUICIDE ATTEMPT
     Dosage: 180 MG, TOTAL
     Route: 048
     Dates: start: 20180412, end: 20180412
  10. PERINDOPRIL [Suspect]
     Active Substance: PERINDOPRIL
     Indication: SUICIDE ATTEMPT
     Dosage: 48 MG, TOTAL
     Route: 048
     Dates: start: 20180412, end: 20180412
  11. ALPRAZOLAM. [Suspect]
     Active Substance: ALPRAZOLAM
     Indication: SUICIDE ATTEMPT
     Dosage: 15 MG, TOTAL
     Route: 048
     Dates: start: 20180412, end: 20180412
  12. CLOMIPRAMINE [CLOMIPRAMINE HYDROCHLORIDE] [Suspect]
     Active Substance: CLOMIPRAMINE HYDROCHLORIDE
     Indication: SUICIDE ATTEMPT
     Dosage: 2.25 G, TOTAL
     Route: 048
     Dates: start: 20180412, end: 20180412

REACTIONS (9)
  - Somnolence [Recovered/Resolved]
  - Toxicity to various agents [Recovered/Resolved]
  - Coma [Recovered/Resolved]
  - Cyanosis [Recovered/Resolved]
  - Hypoxia [Recovered/Resolved]
  - Intentional overdose [Unknown]
  - Livedo reticularis [Recovered/Resolved]
  - Shock [Recovered/Resolved]
  - Hypotension [Recovered/Resolved]

NARRATIVE: CASE EVENT DATE: 20180412
